FAERS Safety Report 7885246-2 (Version None)
Quarter: 2011Q4

REPORT INFORMATION
  Report Type: 
  Country: None (occurrence: None)
  Receive Date: 20111102
  Receipt Date: 20111026
  Transmission Date: 20120403
  Serious: Yes (Other)
  Sender: FDA-Public Use
  Company Number: US-PFIZER INC-2011261807

PATIENT
  Sex: Female
  Weight: 97.5 kg

DRUGS (1)
  1. CHANTIX [Suspect]
     Dosage: UNK

REACTIONS (8)
  - ANGER [None]
  - ABNORMAL DREAMS [None]
  - MOOD SWINGS [None]
  - VIOLENCE-RELATED SYMPTOM [None]
  - NAUSEA [None]
  - ABNORMAL BEHAVIOUR [None]
  - CRYING [None]
  - ANXIETY [None]
